FAERS Safety Report 6030541-5 (Version None)
Quarter: 2009Q1

REPORT INFORMATION
  Report Type: 
  Country: None (occurrence: None)
  Receive Date: 20090105
  Receipt Date: 20090105
  Transmission Date: 20090719
  Serious: Yes (Other)
  Sender: FDA-Public Use
  Company Number: None

PATIENT
  Age: 54 Year
  Sex: Male
  Weight: 123.3784 kg

DRUGS (2)
  1. ADVAIR HFA [Suspect]
     Indication: NO THERAPEUTIC RESPONSE
     Dosage: 2 PUFFS TWICE A DAY INHAL
     Route: 055
     Dates: start: 20081204, end: 20081215
  2. ADVAIR HFA [Suspect]

REACTIONS (5)
  - ANGER [None]
  - APHTHOUS STOMATITIS [None]
  - DYSPHONIA [None]
  - ODYNOPHAGIA [None]
  - PRODUCT QUALITY ISSUE [None]
